FAERS Safety Report 17258668 (Version 1)
Quarter: 2020Q1

REPORT INFORMATION
  Report Type: Spontaneous
  Country: US (occurrence: US)
  Receive Date: 20200110
  Receipt Date: 20200110
  Transmission Date: 20200409
  Serious: Yes (Hospitalization, Other)
  Sender: FDA-Public Use
  Company Number: US-ABBVIE-20K-163-3227566-00

PATIENT
  Age: 60 Year
  Sex: Female

DRUGS (2)
  1. HUMIRA [Suspect]
     Active Substance: ADALIMUMAB
     Indication: RHEUMATOID ARTHRITIS
     Route: 058
     Dates: start: 2009
  2. CHLOROPROCAINE [Suspect]
     Active Substance: CHLOROPROCAINE
     Indication: KNEE ARTHROPLASTY
     Route: 024
     Dates: start: 20181212, end: 20181212

REACTIONS (12)
  - Limb discomfort [Unknown]
  - Knee arthroplasty [Recovered/Resolved]
  - Gait disturbance [Unknown]
  - Muscular weakness [Not Recovered/Not Resolved]
  - Gait inability [Not Recovered/Not Resolved]
  - Paraesthesia [Unknown]
  - Mobility decreased [Unknown]
  - Dysstasia [Unknown]
  - Joint hyperextension [Not Recovered/Not Resolved]
  - Knee arthroplasty [Recovered/Resolved]
  - Myelitis transverse [Unknown]
  - Pain [Unknown]

NARRATIVE: CASE EVENT DATE: 201806
